FAERS Safety Report 15369069 (Version 1)
Quarter: 2018Q3

REPORT INFORMATION
  Report Type: Spontaneous
  Country: FR (occurrence: FR)
  Receive Date: 20180911
  Receipt Date: 20180911
  Transmission Date: 20181010
  Serious: Yes (Other)
  Sender: FDA-Public Use
  Company Number: FR-TEVA-2018-FR-953172

PATIENT
  Age: 65 Year
  Sex: Male

DRUGS (2)
  1. BROMAZEPAM [Suspect]
     Active Substance: BROMAZEPAM
     Indication: CHEMICAL SUBMISSION
     Route: 048
     Dates: start: 20170801, end: 20170818
  2. DIAZEPAM. [Suspect]
     Active Substance: DIAZEPAM
     Indication: CHEMICAL SUBMISSION
     Route: 048
     Dates: start: 20170801, end: 20170818

REACTIONS (1)
  - Victim of chemical submission [Recovered/Resolved]

NARRATIVE: CASE EVENT DATE: 20170801
